FAERS Safety Report 9778039 (Version 1)
Quarter: 2013Q4

REPORT INFORMATION
  Report Type: Report from Study
  Country: US (occurrence: US)
  Receive Date: 20131223
  Receipt Date: 20131223
  Transmission Date: 20140711
  Serious: Yes (Hospitalization, Other)
  Sender: FDA-Public Use
  Company Number: US-ROCHE-1320937

PATIENT
  Age: 62 Year
  Sex: Female
  Weight: 80 kg

DRUGS (8)
  1. BEVACIZUMAB [Suspect]
     Indication: ENDOMETRIAL ADENOCARCINOMA
     Dosage: OVER 30-90 MINUTES ON DAY 1 (CYCLE = 21 DAY) (STARTING WITH CYCLE 2 FOR THOSE PTS ENTERING POST?SURG
     Route: 042
  2. BEVACIZUMAB [Suspect]
     Dosage: OVER 30-90 MINUTES ON DAY 1 MAINTENANCE THERAPY (CYCLES 7+):
     Route: 042
  3. BEVACIZUMAB [Suspect]
     Dosage: OVER 30-90 MINUTES ON DAY 1?TOTAL DOSE ADMINISTERED - 1200 MG ?LAST ADMINISTERED DATE- 19/JAN/2011,
     Route: 042
  4. IXABEPILONE [Suspect]
     Indication: ENDOMETRIAL ADENOCARCINOMA
     Dosage: OVER 1 HR ON DAY 1 X 6 CYCLES (CYCLE = 21 DAYS)?TOTAL DOSE ADMINISTERED - 56 MG ?LAST ADMINISTERED D
     Route: 042
  5. IXABEPILONE [Suspect]
     Dosage: OVER 1 HR ON DAY 1 X 6 CYCLES?TOTAL DOSE ADMINISTERED - 56 MG ?LAST ADMINISTERED DATE- 19/JAN/2011.
     Route: 042
  6. CARBOPLATIN [Suspect]
     Indication: ENDOMETRIAL ADENOCARCINOMA
     Dosage: AUC = 6 OVER 30 MINUTES ON DAY 1 X 6 CYCLES (CYCLE = 21 DAYS)?TOTAL DOSE ADMINISTERED - 530 MG ?LAST
     Route: 042
  7. CARBOPLATIN [Suspect]
     Dosage: AUC = 5 OVER 30 MINUTES ON DAY 1 X 6 CYCLES?TOTAL DOSE ADMINISTERED - 530 MG ?LAST ADMINISTERED DATE
     Route: 042
  8. BACTRIM [Concomitant]
     Indication: URINARY TRACT INFECTION
     Route: 065

REACTIONS (9)
  - Rash maculo-papular [Recovered/Resolved]
  - Dehydration [Recovered/Resolved]
  - Hypokalaemia [Recovered/Resolved]
  - Hyponatraemia [Recovered/Resolved]
  - Blood creatinine increased [Recovered/Resolved]
  - Platelet count decreased [Recovered/Resolved]
  - Nausea [Recovered/Resolved]
  - Vomiting [Recovered/Resolved]
  - Anaemia [Recovered/Resolved]
